FAERS Safety Report 9110426 (Version 1)
Quarter: 2013Q1

REPORT INFORMATION
  Report Type: Spontaneous
  Country: US (occurrence: US)
  Receive Date: 20130219
  Receipt Date: 20130219
  Transmission Date: 20140127
  Serious: No
  Sender: FDA-Public Use
  Company Number: US-BRISTOL-MYERS SQUIBB COMPANY-16928509

PATIENT
  Age: 64 Year
  Sex: Female
  Weight: 5.09 kg

DRUGS (2)
  1. ORENCIA [Suspect]
     Indication: RHEUMATOID ARTHRITIS
     Dosage: LAST INFUSION ON 31AUG2012
     Route: 042
     Dates: start: 20120709
  2. PREDNISONE [Concomitant]
     Dosage: STARTED WITH 10MG

REACTIONS (1)
  - Drug ineffective [Unknown]
